FAERS Safety Report 9357835 (Version 4)
Quarter: 2013Q3

REPORT INFORMATION
  Report Type: Spontaneous
  Country: JP (occurrence: JP)
  Receive Date: 20130620
  Receipt Date: 20130801
  Transmission Date: 20140515
  Serious: Yes (Hospitalization, Other)
  Sender: FDA-Public Use
  Company Number: JP-009507513-1306JPN007722

PATIENT
  Age: 34 Year
  Sex: Male
  Weight: 61 kg

DRUGS (45)
  1. REMERON TABLETS 15MG [Suspect]
     Indication: DEPRESSION
     Dosage: 45 MG, QD
     Route: 048
     Dates: start: 20130611
  2. REMERON TABLETS 15MG [Suspect]
     Dosage: 45 MG, 1 DAY
     Route: 048
     Dates: start: 20130319, end: 20130408
  3. REMERON TABLETS 15MG [Suspect]
     Dosage: 30 MG, 1 DAY
     Route: 048
     Dates: start: 20121218, end: 20130318
  4. REMERON TABLETS 15MG [Suspect]
     Dosage: 30 MG, 1 DAY
     Route: 048
     Dates: start: 20121004, end: 20121213
  5. REMERON TABLETS 15MG [Suspect]
     Dosage: 15 MG, 1 DAY
     Dates: start: 20120815, end: 20121003
  6. LONASEN [Suspect]
     Indication: HALLUCINATION
     Dosage: 8 MG, 1 DAY
     Route: 048
     Dates: start: 20130704
  7. LONASEN [Suspect]
     Indication: DELUSION
     Dosage: DIVIDED DOSE FREQUENCY UNKNOWN
     Route: 048
     Dates: start: 20130611, end: 20130703
  8. LONASEN [Suspect]
     Dosage: 24 MG, 1 DAY
     Route: 048
     Dates: start: 20121218, end: 20130408
  9. LONASEN [Suspect]
     Dosage: 24 MG, 1 DAY
     Route: 048
     Dates: start: 20120906, end: 20121213
  10. LONASEN [Suspect]
     Dosage: 20 MG, 1 DAY
     Route: 048
     Dates: start: 20120903, end: 20120905
  11. LONASEN [Suspect]
     Dosage: 16 MG, 1 DAY
     Route: 048
     Dates: start: 20120814, end: 20120902
  12. ROHYPNOL [Suspect]
     Indication: INSOMNIA
     Dosage: 2 MG, 1 DAY, BEFORE SLEEP
     Route: 048
     Dates: start: 20130611
  13. ROHYPNOL [Suspect]
     Dosage: 2 MG, 1 DAY, BEFORE SLEEP
     Route: 048
     Dates: start: 20130319, end: 20130408
  14. ROHYPNOL [Suspect]
     Dosage: 2 MG, 1 DAY, BEFORE SLEEP
     Route: 048
     Dates: start: 20130226, end: 20130318
  15. ROHYPNOL [Suspect]
     Dosage: 2 MG, 1 DAY, BEFORE SLEEP
     Route: 048
     Dates: start: 20130205, end: 20130225
  16. ROHYPNOL [Suspect]
     Dosage: 2 MG, 1 DAY, BEFORE SLEEP
     Route: 048
     Dates: start: 20130115, end: 20130204
  17. ROHYPNOL [Suspect]
     Dosage: 10 BATCHES, TAKEN AT SLEEP LOSS
     Route: 048
     Dates: start: 20130108, end: 20130114
  18. ROHYPNOL [Suspect]
     Dosage: 10 BATCHES, TAKEN AT SLEEP LOSS
     Dates: start: 20121218, end: 20130107
  19. ROHYPNOL [Suspect]
     Dosage: 14 BATCHES, TAKEN AT SLEEP LOSS
     Route: 048
     Dates: start: 20121119
  20. ROHYPNOL [Suspect]
     Dosage: 14 BATCHES, TAKEN AT SLEEP LOSS
     Route: 048
     Dates: start: 20121113, end: 20121118
  21. ROHYPNOL [Suspect]
     Dosage: 14 BATCHES, TAKEN AT SLEEP LOSS
     Route: 048
     Dates: start: 20121105, end: 20121112
  22. ROHYPNOL [Suspect]
     Dosage: 14 BATCHES, TAKEN AS NEED
     Route: 048
     Dates: start: 20121026, end: 20121031
  23. ROHYPNOL [Suspect]
     Dosage: TEN BATCHES, TAKEN AT SLEEP LOSS
     Route: 048
     Dates: start: 20121022, end: 20121104
  24. ROHYPNOL [Suspect]
     Dosage: 10 BATCHES, TAKEN AS NEED
     Route: 048
     Dates: start: 20121015, end: 20121021
  25. ROHYPNOL [Suspect]
     Dosage: 10 BATCHES, TAKEN AS NEED
     Route: 048
     Dates: start: 20121011, end: 20121014
  26. ROHYPNOL [Suspect]
     Dosage: 10 BATCHES, TAKEN AS NEED
     Route: 048
     Dates: start: 20121002, end: 20121010
  27. ROHYPNOL [Suspect]
     Dosage: 10 BATCHES, TAKEN AT SLEEP LOSS
     Route: 048
     Dates: start: 20120924, end: 20121001
  28. ROHYPNOL [Suspect]
     Dosage: 10 BATCHES, TAKEN AT SLEEP LOSS
     Route: 048
     Dates: start: 20120910, end: 20120923
  29. ROHYPNOL [Suspect]
     Dosage: 10 BATCHES, TAKEN AS NEED
     Route: 048
     Dates: start: 20120828, end: 20120909
  30. ROHYPNOL [Suspect]
     Dosage: 10 BATCHES, TAKEN AT SLEEP LOSS
     Route: 048
     Dates: start: 20120815, end: 20120827
  31. SOLANAX [Suspect]
     Indication: ANXIETY
     Dosage: 10 BATCHES, TAKEN AT SLEEP LOSS
     Route: 048
     Dates: start: 20130611
  32. SOLANAX [Suspect]
     Dosage: 0.8 MG, AS NEED
     Route: 048
     Dates: start: 20130611
  33. SOLANAX [Suspect]
     Dosage: 0.4 MG, AT THE ANXIETY
     Route: 048
     Dates: start: 20120814
  34. SOLANAX [Suspect]
     Dosage: 0.4 MG, AS NEED
     Route: 048
     Dates: start: 20120815
  35. SOLANAX [Suspect]
     Dosage: 2.4 MG, UNK
     Route: 048
     Dates: start: 20121129
  36. AKINETON TABLETS [Suspect]
     Indication: AKATHISIA
     Dosage: 2 MG, AS NEED
     Route: 048
     Dates: start: 20130611
  37. AKINETON TABLETS [Suspect]
     Dosage: 1 MG, BEFORE SLEEP
     Route: 048
     Dates: start: 20130704
  38. AKINETON TABLETS [Suspect]
     Dosage: 2 MG, BEFORE SLEEP
     Route: 048
     Dates: start: 20120814
  39. AKINETON TABLETS [Suspect]
     Dosage: 1 MG, AS NEED
     Route: 048
     Dates: start: 20121117
  40. AKINETON TABLETS [Suspect]
     Dosage: 6 MG, BEFORE SLEEP
     Route: 048
     Dates: start: 20121129
  41. AKINETON TABLETS [Suspect]
     Dosage: 3 MG, AS NEED
     Dates: start: 20121117
  42. AKINETON INJECTION [Suspect]
     Indication: AKATHISIA
     Dosage: 5 MG, UNK
     Route: 030
     Dates: start: 20121117, end: 20121117
  43. LENDORMIN [Concomitant]
     Indication: INSOMNIA
     Dosage: 0.25 MG, AT A SLEEP LOSS
     Route: 048
     Dates: start: 20130611
  44. DEPAS [Concomitant]
     Indication: ANXIETY
     Dosage: 1 MG, AT THE ANXIETY
     Route: 048
     Dates: start: 20130611
  45. DEPAS [Concomitant]
     Dosage: 1 MG, AS NEED
     Route: 048
     Dates: start: 20130611

REACTIONS (1)
  - Rhabdomyolysis [Recovered/Resolved]
